FAERS Safety Report 19847197 (Version 1)
Quarter: 2021Q3

REPORT INFORMATION
  Report Type: Spontaneous
  Country: CZ (occurrence: CZ)
  Receive Date: 20210917
  Receipt Date: 20210917
  Transmission Date: 20211014
  Serious: Yes (Other)
  Sender: FDA-Public Use
  Company Number: CZ-ARBOR PHARMACEUTICALS, LLC-CZ-2021ARB001072

PATIENT
  Age: 67 Year
  Sex: Male

DRUGS (9)
  1. ABIRATERONE ACETATE. [Suspect]
     Active Substance: ABIRATERONE ACETATE
     Indication: PROSTATE CANCER
     Dosage: UNK
  2. TRIPTODUR [Suspect]
     Active Substance: TRIPTORELIN
  3. TRIPTODUR [Suspect]
     Active Substance: TRIPTORELIN
     Indication: PROSTATE CANCER
     Dosage: STRENGTH AND DOSE: 11.25 MG (11.25 MG,3 M)
     Route: 030
     Dates: start: 20191218, end: 20200318
  4. PREDNISONE. [Suspect]
     Active Substance: PREDNISONE
     Indication: PRODUCT USED FOR UNKNOWN INDICATION
     Dosage: UNK
  5. BICALUTAMIDE. [Concomitant]
     Active Substance: BICALUTAMIDE
     Indication: DISEASE PROGRESSION
     Dosage: 50 MG, QD
     Dates: start: 201912
  6. TRIPTODUR [Suspect]
     Active Substance: TRIPTORELIN
     Indication: OFF LABEL USE
  7. ABIRATERONE ACETATE. [Suspect]
     Active Substance: ABIRATERONE ACETATE
     Indication: METASTASES TO BONE
  8. TRIPTODUR [Suspect]
     Active Substance: TRIPTORELIN
     Indication: METASTASES TO BONE
  9. TRIPTODUR [Suspect]
     Active Substance: TRIPTORELIN

REACTIONS (7)
  - Disease progression [Unknown]
  - Flushing [Recovered/Resolved]
  - Weight increased [Recovered/Resolved]
  - Hypertension [Recovered/Resolved]
  - Aspartate aminotransferase increased [Recovered/Resolved]
  - Alanine aminotransferase increased [Recovered/Resolved]
  - Off label use [Unknown]

NARRATIVE: CASE EVENT DATE: 2019
